FAERS Safety Report 19165052 (Version 1)
Quarter: 2021Q2

REPORT INFORMATION
  Report Type: Spontaneous
  Country: NL (occurrence: NL)
  Receive Date: 20210421
  Receipt Date: 20210421
  Transmission Date: 20210717
  Serious: Yes (Life-Threatening, Hospitalization)
  Sender: FDA-Public Use
  Company Number: NL-TEVA-2021-NL-1892313

PATIENT
  Age: 50 Year
  Sex: Female
  Weight: 94 kg

DRUGS (4)
  1. MEDROXYPROGESTERON INJSUSP 150MG/ML / DEPO PROVERA  150 INJSUSP 150MG/ [Concomitant]
     Dosage: 150 MG / ML (MILLIGRAMS PER MILLILITER):THERAPY END DATE :ASKED BUT UNKNOWN
  2. DICLOFENAC?NATRIUM INJVLST 25MG/ML / BRAND NAME NOT SPECIFIED [Suspect]
     Active Substance: DICLOFENAC SODIUM
     Indication: NEPHROLITHIASIS
     Dosage: 1DOSAGEFORM?DICLOFENAC ?NATRIUM INJVLST 25MG/ML / BRAND NAME NOT SPECIFIED
     Route: 065
     Dates: start: 20210222, end: 20210224
  3. SERTRALINE TABLET  50MG / BRAND NAME NOT SPECIFIED [Concomitant]
     Dosage: 75MGTHERAPY START DATE:ASKED BUT UNKNOWN:THERAPY END DATE :ASKED BUT UNKNOWN
  4. DICLOFENAC?KALIUM TABLET OMHULD 50MG / BRAND NAME NOT SPECIFIED [Suspect]
     Active Substance: DICLOFENAC POTASSIUM
     Indication: NEPHROLITHIASIS
     Dosage: PLUS PILLS 3 PCS:UNIT DOSE:3DOSAGEFORM
     Route: 065
     Dates: start: 20210222, end: 20210224

REACTIONS (1)
  - Renal failure [Recovering/Resolving]

NARRATIVE: CASE EVENT DATE: 20210224
